FAERS Safety Report 6557150-3 (Version None)
Quarter: 2010Q1

REPORT INFORMATION
  Report Type: 
  Country: None (occurrence: None)
  Receive Date: 20100126
  Receipt Date: 20100113
  Transmission Date: 20100710
  Serious: Yes (Other)
  Sender: FDA-Public Use
  Company Number: 8028504

PATIENT
  Age: 35 Year
  Sex: Female

DRUGS (7)
  1. KEPPRA [Suspect]
     Indication: EPILEPSY
     Dosage: 2000 MG, DAILY DOSE FREQ.:DAILY ORAL, 2500 MG, DAILY DOSE FREQ.: DAILY ORAL, 1500 MG  BID ORAL
     Route: 048
     Dates: start: 20051101, end: 20070117
  2. KEPPRA [Suspect]
     Indication: EPILEPSY
     Dosage: 2000 MG, DAILY DOSE FREQ.:DAILY ORAL, 2500 MG, DAILY DOSE FREQ.: DAILY ORAL, 1500 MG  BID ORAL
     Route: 048
     Dates: start: 20070118, end: 20070306
  3. KEPPRA [Suspect]
     Indication: EPILEPSY
     Dosage: 2000 MG, DAILY DOSE FREQ.:DAILY ORAL, 2500 MG, DAILY DOSE FREQ.: DAILY ORAL, 1500 MG  BID ORAL
     Route: 048
     Dates: start: 20070307
  4. LAMICTAL [Concomitant]
  5. ALDOMET [Concomitant]
  6. LEVOTHROID [Concomitant]
  7. FOLIC ACID [Concomitant]

REACTIONS (3)
  - DRUG EXPOSURE DURING PREGNANCY [None]
  - GESTATIONAL DIABETES [None]
  - PREGNANCY [None]
